FAERS Safety Report 4613518-3 (Version None)
Quarter: 2005Q1

REPORT INFORMATION
  Report Type: 
  Country: None (occurrence: None)
  Receive Date: 20050321
  Receipt Date: 20050309
  Transmission Date: 20050727
  Serious: Yes (Hospitalization)
  Sender: FDA-Public Use
  Company Number: FR-BRISTOL-MYERS SQUIBB COMPANY-12892949

PATIENT
  Age: 53 Year
  Sex: Male

DRUGS (3)
  1. COUMADIN [Suspect]
     Indication: PHLEBITIS DEEP
     Route: 048
  2. COUMADIN [Suspect]
     Indication: THROMBOPHLEBITIS
     Route: 048
  3. CORDARONE [Suspect]
     Route: 048

REACTIONS (2)
  - GASTROINTESTINAL HAEMORRHAGE [None]
  - SYNCOPE [None]
